FAERS Safety Report 20471458 (Version 1)
Quarter: 2022Q1

REPORT INFORMATION
  Report Type: Spontaneous
  Country: US (occurrence: US)
  Receive Date: 20220214
  Receipt Date: 20220214
  Transmission Date: 20220424
  Serious: No
  Sender: FDA-Public Use
  Company Number: US-SA-SAC20220208000750

PATIENT
  Sex: Female
  Weight: 100.2 kg

DRUGS (4)
  1. DUPIXENT [Suspect]
     Active Substance: DUPILUMAB
     Indication: Asthma
     Dosage: 300 MG, QOW
     Route: 058
  2. TALTZ [Concomitant]
     Active Substance: IXEKIZUMAB
     Dosage: SYRINGE
  3. FLUAD QUAD [Concomitant]
     Dosage: UNK
     Dates: start: 2021
  4. FLUAD QUAD [Concomitant]
     Dosage: UNK
     Dates: start: 2022

REACTIONS (2)
  - Asthma [Not Recovered/Not Resolved]
  - Product use issue [Unknown]
